FAERS Safety Report 6331828-9 (Version None)
Quarter: 2009Q3

REPORT INFORMATION
  Report Type: 
  Country: None (occurrence: None)
  Receive Date: 20090826
  Receipt Date: 20090819
  Transmission Date: 20100115
  Serious: Yes (Hospitalization)
  Sender: FDA-Public Use
  Company Number: CHPA2009US17323

PATIENT
  Age: 68 Year
  Sex: Female

DRUGS (1)
  1. EXCEDRIN (MIGRAINE) [Suspect]
     Indication: CLUSTER HEADACHE
     Dosage: 4 DF, QD, ORAL
     Route: 048
     Dates: start: 19790101

REACTIONS (4)
  - CELLULITIS [None]
  - INTENTIONAL DRUG MISUSE [None]
  - OEDEMA [None]
  - PRURITUS [None]
